FAERS Safety Report 8807415 (Version 2)
Quarter: 2012Q4

REPORT INFORMATION
  Report Type: 
  Country: FR (occurrence: FR)
  Receive Date: 20120925
  Receipt Date: 20121030
  Transmission Date: 20130627
  Serious: Yes (Other)
  Sender: FDA-Public Use
  Company Number: FR-ELI_LILLY_AND_COMPANY-FR201209004171

PATIENT
  Age: 64 Year
  Sex: Female
  Weight: 63 kg

DRUGS (1)
  1. FORSTEO [Suspect]
     Indication: OSTEOPOROTIC FRACTURE
     Dosage: 20 ug, unknown
     Route: 058
     Dates: start: 20111122

REACTIONS (4)
  - Arrhythmia [Recovered/Resolved]
  - Vertigo [Recovered/Resolved]
  - Tachycardia [Recovered/Resolved]
  - Dyspnoea exertional [Unknown]
